FAERS Safety Report 8860942 (Version 1)
Quarter: 2012Q4

REPORT INFORMATION
  Report Type: 
  Country: US (occurrence: US)
  Receive Date: 20121025
  Receipt Date: 20121025
  Transmission Date: 20130627
  Serious: No
  Sender: FDA-Public Use
  Company Number: US-AMGEN-USASP2012012629

PATIENT
  Age: 46 Year
  Sex: Female
  Weight: 86.17 kg

DRUGS (8)
  1. ENBREL [Suspect]
     Indication: RHEUMATOID ARTHRITIS
     Dosage: 50 mg, qwk
     Route: 058
  2. PLAQUENIL                          /00072602/ [Concomitant]
     Dosage: 200 mg, UNK
  3. CELEBREX [Concomitant]
     Dosage: 200 mg, UNK
     Route: 048
  4. METHOTREXATE [Concomitant]
     Dosage: 2.5 mg, UNK
     Route: 048
  5. VITAMIN D /00107901/ [Concomitant]
     Dosage: 50000 IU, UNK
     Route: 048
  6. AMITRIPTYLIN [Concomitant]
     Dosage: 100 mg, UNK
     Route: 048
  7. CALCIUM [Concomitant]
     Dosage: 500 mg, UNK
     Route: 048
  8. FOLIC ACID [Concomitant]
     Route: 048

REACTIONS (4)
  - Injection site reaction [Unknown]
  - Injection site swelling [Unknown]
  - Injection site erythema [Unknown]
  - Injection site pruritus [Unknown]
